FAERS Safety Report 5495981-1 (Version None)
Quarter: 2007Q4

REPORT INFORMATION
  Report Type: 
  Country: None (occurrence: None)
  Receive Date: 20071025
  Receipt Date: 20070301
  Transmission Date: 20080405
  Serious: No
  Sender: FDA-Public Use
  Company Number: A0634491A

PATIENT
  Age: 70 Year
  Sex: Female

DRUGS (10)
  1. ADVAIR DISKUS 100/50 [Suspect]
     Indication: DRUG USE FOR UNKNOWN INDICATION
     Dosage: 1PUFF TWICE PER DAY
     Route: 055
     Dates: start: 20030101
  2. FOLIC ACID [Concomitant]
  3. ACCOLATE [Concomitant]
  4. PLAVIX [Concomitant]
  5. SALSALATE [Concomitant]
  6. NEURONTIN [Concomitant]
  7. COZAAR [Concomitant]
  8. TRAZODONE HCL [Concomitant]
  9. OXYBUTYNIN CHLORIDE [Concomitant]
  10. LOVASTATIN [Concomitant]

REACTIONS (2)
  - DRUG INEFFECTIVE [None]
  - PHARMACEUTICAL PRODUCT COMPLAINT [None]
